FAERS Safety Report 16365450 (Version 1)
Quarter: 2019Q2

REPORT INFORMATION
  Report Type: Spontaneous
  Country: IT (occurrence: IT)
  Receive Date: 20190529
  Receipt Date: 20190529
  Transmission Date: 20190711
  Serious: Yes (Hospitalization)
  Sender: FDA-Public Use
  Company Number: PHHY2019IT121664

PATIENT
  Age: 48 Year
  Sex: Female

DRUGS (2)
  1. SECUKINUMAB. [Suspect]
     Active Substance: SECUKINUMAB
     Indication: PSORIASIS
     Dosage: 300 MG, AT WEEKS 0, 1, 2, 3 AND
     Route: 065
  2. SECUKINUMAB. [Suspect]
     Active Substance: SECUKINUMAB
     Dosage: 300 MG, QMO
     Route: 065

REACTIONS (4)
  - Oesophageal disorder [Unknown]
  - Oesophageal candidiasis [Unknown]
  - Gastritis erosive [Unknown]
  - Chest pain [Unknown]
